FAERS Safety Report 16883548 (Version 6)
Quarter: 2020Q3

REPORT INFORMATION
  Report Type: Report from Study
  Country: JP (occurrence: JP)
  Receive Date: 20191004
  Receipt Date: 20200811
  Transmission Date: 20201102
  Serious: Yes (Hospitalization)
  Sender: FDA-Public Use
  Company Number: JP-TAKEDA-2019TJP022547

PATIENT
  Age: 64 Year
  Sex: Female
  Weight: 56.8 kg

DRUGS (10)
  1. IXAZOMIB [Suspect]
     Active Substance: IXAZOMIB
     Indication: PLASMA CELL MYELOMA
     Dosage: 4 MILLIGRAM, 1/WEEK
     Route: 048
     Dates: start: 20180814, end: 20180828
  2. REVLIMID [Suspect]
     Active Substance: LENALIDOMIDE
     Indication: PLASMA CELL MYELOMA
     Dosage: 10 MILLIGRAM, QD
     Route: 048
     Dates: start: 20180814
  3. LENADEX [Suspect]
     Active Substance: DEXAMETHASONE ACETATE
     Indication: PLASMA CELL MYELOMA
     Dosage: 20 MILLIGRAM, 1/WEEK
     Route: 048
     Dates: start: 20180814
  4. IXAZOMIB [Suspect]
     Active Substance: IXAZOMIB
     Dosage: 4 MILLIGRAM, 1/WEEK
     Route: 048
     Dates: start: 20181106
  5. BROTIZOLAM [Concomitant]
     Active Substance: BROTIZOLAM
     Indication: INSOMNIA
     Dosage: 0.25 MILLIGRAM, QD
     Route: 048
     Dates: start: 20190912
  6. IXAZOMIB [Suspect]
     Active Substance: IXAZOMIB
     Dosage: 3 MILLIGRAM, 1/WEEK
     Route: 048
     Dates: start: 20180911, end: 20181023
  7. ACICLOVIR [Concomitant]
     Active Substance: ACYCLOVIR
     Dosage: UNK
     Route: 065
  8. CLOTIAZEPAM [Concomitant]
     Active Substance: CLOTIAZEPAM
     Indication: INSOMNIA
     Dosage: 5 MILLIGRAM, QD
     Route: 048
     Dates: start: 20190912
  9. MECOBALAMIN [Concomitant]
     Active Substance: METHYLCOBALAMIN
     Indication: HYPOAESTHESIA
     Dosage: 0.5 MILLIGRAM, TID
     Route: 048
     Dates: start: 20190829
  10. REVLIMID [Suspect]
     Active Substance: LENALIDOMIDE
     Dosage: 15 MILLIGRAM, QD
     Route: 048
     Dates: start: 20181106

REACTIONS (2)
  - Pulmonary tuberculosis [Recovered/Resolved]
  - Platelet count decreased [Recovered/Resolved]

NARRATIVE: CASE EVENT DATE: 20190815
